FAERS Safety Report 8920602 (Version 3)
Quarter: 2014Q2

REPORT INFORMATION
  Report Type: Report from Study
  Country: JP (occurrence: JP)
  Receive Date: 20121121
  Receipt Date: 20140403
  Transmission Date: 20141212
  Serious: Yes (Hospitalization, Disabling)
  Sender: FDA-Public Use
  Company Number: JP-ALLERGAN-1216299US

PATIENT
  Age: 59 Year
  Sex: Male

DRUGS (13)
  1. BIMATOPROST 0.03% SOL-EYE (9106X) [Suspect]
     Indication: OPEN ANGLE GLAUCOMA
     Dosage: 1 GTT OD, QD
     Route: 047
     Dates: start: 20091226, end: 20101210
  2. BIMATOPROST 0.03% SOL-EYE (9106X) [Suspect]
     Dosage: 1 GTT OD, QD
     Route: 047
     Dates: start: 20101227, end: 20110721
  3. BIMATOPROST 0.03% SOL-EYE (9106X) [Suspect]
     Dosage: 1 GTT OS, QD
     Route: 047
     Dates: start: 20091226
  4. TIMOPTOL XE [Concomitant]
     Indication: PRODUCT USED FOR UNKNOWN INDICATION
     Dosage: UNK
     Route: 047
     Dates: start: 20041218
  5. AZOPT [Concomitant]
     Indication: PRODUCT USED FOR UNKNOWN INDICATION
     Dosage: UNK
     Route: 047
     Dates: start: 20051112
  6. METHYCOBAL [Concomitant]
     Indication: PRODUCT USED FOR UNKNOWN INDICATION
  7. RINBETA PF [Concomitant]
     Indication: PRODUCT USED FOR UNKNOWN INDICATION
     Dosage: UNK
     Route: 047
     Dates: start: 20101211, end: 20110520
  8. CRAVIT [Concomitant]
     Indication: PRODUCT USED FOR UNKNOWN INDICATION
     Dosage: UNK
     Route: 047
     Dates: start: 20101211, end: 20110708
  9. DIAMOX [Concomitant]
     Dosage: UNK
     Dates: start: 20101227
  10. ASPARA K [Concomitant]
     Indication: PRODUCT USED FOR UNKNOWN INDICATION
     Dosage: UNK
     Dates: start: 20101227
  11. URSO [Concomitant]
     Indication: PRODUCT USED FOR UNKNOWN INDICATION
  12. EUGLUCON [Concomitant]
     Indication: PRODUCT USED FOR UNKNOWN INDICATION
     Dosage: UNK
     Dates: start: 2002
  13. FLUMETHOLON [Concomitant]
     Dosage: UNK
     Route: 047
     Dates: start: 20110520, end: 20110722

REACTIONS (9)
  - Intraocular pressure increased [Recovered/Resolved]
  - Intraocular pressure increased [Recovered/Resolved]
  - Visual field defect [Not Recovered/Not Resolved]
  - Hyphaema [Recovered/Resolved]
  - Conjunctival hyperaemia [Not Recovered/Not Resolved]
  - Punctate keratitis [Recovered/Resolved]
  - Growth of eyelashes [Not Recovered/Not Resolved]
  - Conjunctival hyperaemia [Not Recovered/Not Resolved]
  - Blepharal pigmentation [Not Recovered/Not Resolved]
